FAERS Safety Report 15121629 (Version 1)
Quarter: 2018Q3

REPORT INFORMATION
  Report Type: Spontaneous
  Country: US (occurrence: US)
  Receive Date: 20180613
  Receipt Date: 20180613
  Transmission Date: 20181010
  Serious: Yes (Death)
  Sender: FDA-Public Use
  Company Number: None

PATIENT
  Sex: Female

DRUGS (10)
  1. CAPTOPRIL. [Concomitant]
     Active Substance: CAPTOPRIL
  2. CLONIDINE. [Concomitant]
     Active Substance: CLONIDINE
  3. HUMIRA [Suspect]
     Active Substance: ADALIMUMAB
     Indication: PRODUCT USED FOR UNKNOWN INDICATION
     Route: 058
  4. LEVOTHYROXINE. [Concomitant]
     Active Substance: LEVOTHYROXINE
  5. DIVALPROEX [Concomitant]
     Active Substance: DIVALPROEX SODIUM
  6. METOPROLOL. [Concomitant]
     Active Substance: METOPROLOL
  7. DEXAMETHASONE. [Concomitant]
     Active Substance: DEXAMETHASONE
  8. HYDRALAZINE [Concomitant]
     Active Substance: HYDRALAZINE HYDROCHLORIDE
  9. FUROSEMIDE. [Concomitant]
     Active Substance: FUROSEMIDE
  10. IRBESARTAN. [Concomitant]
     Active Substance: IRBESARTAN

REACTIONS (1)
  - Death [None]
